FAERS Safety Report 5305198-9 (Version None)
Quarter: 2007Q2

REPORT INFORMATION
  Report Type: 
  Country: None (occurrence: None)
  Receive Date: 20070417
  Receipt Date: 20070329
  Transmission Date: 20071010
  Serious: Yes (Other)
  Sender: FDA-Public Use
  Company Number: SPI200700141

PATIENT
  Age: 21 Year
  Sex: Female
  Weight: 64.4 kg

DRUGS (2)
  1. AMITIZA [Suspect]
     Indication: CONSTIPATION
     Dosage: 24 MCG, BID, ORAL
     Route: 048
     Dates: start: 20061201, end: 20070101
  2. ZELNORM /01470301/ (TEGASEROD) [Concomitant]

REACTIONS (4)
  - ABASIA [None]
  - BURNING SENSATION [None]
  - MUSCULAR WEAKNESS [None]
  - PARAESTHESIA [None]
